FAERS Safety Report 8298336-X (Version None)
Quarter: 2012Q2

REPORT INFORMATION
  Report Type: 
  Country: None (occurrence: None)
  Receive Date: 20120419
  Receipt Date: 20120413
  Transmission Date: 20120825
  Serious: Yes (Other)
  Sender: FDA-Public Use
  Company Number: PHHY2012US031475

PATIENT
  Age: 74 Year
  Sex: Male

DRUGS (4)
  1. NARCOTICS [Concomitant]
  2. HYDRATION [Concomitant]
     Route: 042
  3. CEFTRIAXONE [Concomitant]
     Route: 042
  4. METRONIDAZOLE [Suspect]
     Indication: DIVERTICULITIS
     Route: 042

REACTIONS (5)
  - DECREASED APPETITE [None]
  - PANCREATITIS ACUTE [None]
  - ABDOMINAL PAIN UPPER [None]
  - NAUSEA [None]
  - VOMITING [None]
